FAERS Safety Report 9956915 (Version 1)
Quarter: 2014Q1

REPORT INFORMATION
  Report Type: Report from Study
  Country: US (occurrence: US)
  Receive Date: 20140304
  Receipt Date: 20140304
  Transmission Date: 20141002
  Serious: No
  Sender: FDA-Public Use
  Company Number: US-ABBVIE-13P-163-1102213-00

PATIENT
  Age: 61 Year
  Sex: Female

DRUGS (16)
  1. HUMIRA [Suspect]
     Indication: PSORIATIC ARTHROPATHY
     Route: 058
     Dates: start: 201204, end: 201305
  2. HUMIRA [Suspect]
     Indication: RHEUMATOID ARTHRITIS
     Route: 058
  3. HUMIRA [Suspect]
     Indication: ANKYLOSING SPONDYLITIS
  4. METHOTREXATE [Concomitant]
     Indication: ARTHRITIS
  5. TRAMADOL ER [Concomitant]
  6. NEURONTIN [Concomitant]
     Indication: NEUROPATHY PERIPHERAL
  7. LISINOPRIL [Concomitant]
     Indication: HYPERTENSION
  8. LEVOTHYROXINE [Concomitant]
     Indication: HORMONE REPLACEMENT THERAPY
  9. SKELAXIN [Concomitant]
     Indication: MUSCLE SPASMS
  10. SKELAXIN [Concomitant]
  11. GINGER [Concomitant]
     Indication: ANTIINFLAMMATORY THERAPY
  12. TURMERIC [Concomitant]
     Indication: ANTIINFLAMMATORY THERAPY
  13. FISH OIL [Concomitant]
     Indication: PRODUCT USED FOR UNKNOWN INDICATION
  14. IODINE [Concomitant]
     Indication: SUPPLEMENTATION THERAPY
  15. WHEAT GRASS [Concomitant]
     Indication: ANTIINFLAMMATORY THERAPY
  16. WHEAT GERM [Concomitant]
     Indication: ANTIINFLAMMATORY THERAPY

REACTIONS (5)
  - Musculoskeletal stiffness [Not Recovered/Not Resolved]
  - Dysstasia [Not Recovered/Not Resolved]
  - Back pain [Not Recovered/Not Resolved]
  - Gait disturbance [Not Recovered/Not Resolved]
  - Pain [Unknown]
